FAERS Safety Report 12966132 (Version 3)
Quarter: 2017Q2

REPORT INFORMATION
  Report Type: Report from Study
  Country: US (occurrence: US)
  Receive Date: 20161122
  Receipt Date: 20170418
  Transmission Date: 20170830
  Serious: Yes (Hospitalization, Disabling, Other)
  Sender: FDA-Public Use
  Company Number: US-GILEAD-2016-0233302

PATIENT
  Age: 70 Year
  Sex: Female

DRUGS (1)
  1. RANOLAZINE. [Suspect]
     Active Substance: RANOLAZINE
     Indication: ANGINA PECTORIS
     Dosage: 500 MG, UNK
     Route: 048
     Dates: start: 201310

REACTIONS (6)
  - Renal failure [Unknown]
  - Abasia [Not Recovered/Not Resolved]
  - Hip arthroplasty [Unknown]
  - Foot amputation [Unknown]
  - Skin ulcer [Unknown]
  - Toe amputation [Unknown]
